FAERS Safety Report 25078870 (Version 2)
Quarter: 2025Q1

REPORT INFORMATION
  Report Type: Spontaneous
  Country: US (occurrence: US)
  Receive Date: 20250314
  Receipt Date: 20250318
  Transmission Date: 20250409
  Serious: No
  Sender: GE HEALTHCARE
  Company Number: US-GE HEALTHCARE-2025CSU002967

PATIENT
  Age: 54 Year
  Sex: Female
  Weight: 65.3 kg

DRUGS (2)
  1. OMNIPAQUE [Suspect]
     Active Substance: IOHEXOL
     Indication: Computerised tomogram heart
     Route: 042
     Dates: start: 20250226, end: 20250226
  2. OMNIPAQUE [Suspect]
     Active Substance: IOHEXOL
     Indication: Scan
     Route: 042
     Dates: start: 20250226, end: 20250226

REACTIONS (2)
  - Throat irritation [Recovered/Resolved]
  - Eye swelling [Recovered/Resolved]

NARRATIVE: CASE EVENT DATE: 20250226
